FAERS Safety Report 8055069-2 (Version None)
Quarter: 2012Q1

REPORT INFORMATION
  Report Type: 
  Country: None (occurrence: None)
  Receive Date: 20120119
  Receipt Date: 20120113
  Transmission Date: 20120608
  Serious: Yes (Other)
  Sender: FDA-Public Use
  Company Number: JP-BAYER-201012212BYL

PATIENT
  Age: 75 Year
  Sex: Male
  Weight: 56.2 kg

DRUGS (11)
  1. LENDORMIN [Concomitant]
  2. LENDORMIN [Concomitant]
     Indication: INSOMNIA
     Dosage: BEFORE NEXAVAR ADMINISTRATION
     Route: 048
  3. UREPEARL [Concomitant]
  4. ALLOID G [Concomitant]
  5. UREPEARL [Concomitant]
     Indication: PROPHYLAXIS
     Dosage: BEFORE NEXAVAR ADMINISTRATION
     Route: 061
  6. URSO 250 [Concomitant]
  7. BIOLACTIS [Concomitant]
     Indication: DIARRHOEA
     Dosage: BEFORE NEXAVAR ADMINISTRATION
     Route: 048
  8. NEXAVAR [Suspect]
     Indication: HEPATIC NEOPLASM MALIGNANT
     Route: 048
     Dates: start: 20100428, end: 20100506
  9. URSO 250 [Concomitant]
     Indication: CHRONIC HEPATITIS
     Dosage: BEFORE NEXAVAR ADMINISTRATION
     Route: 048
  10. LIVACT [Concomitant]
     Indication: HEPATIC CIRRHOSIS
     Dosage: BEFORE NEXAVAR ADMINISTRATION
     Route: 048
  11. ALLOID G [Concomitant]
     Indication: GASTRITIS
     Dosage: BEFORE NEXAVAR ADMINISTRATION
     Route: 048

REACTIONS (4)
  - HEPATIC INFARCTION [None]
  - BLOOD LACTATE DEHYDROGENASE INCREASED [None]
  - ASPARTATE AMINOTRANSFERASE INCREASED [None]
  - ALANINE AMINOTRANSFERASE INCREASED [None]
